FAERS Safety Report 4386827-3 (Version None)
Quarter: 2004Q2

REPORT INFORMATION
  Report Type: 
  Country: None (occurrence: None)
  Receive Date: 20040622
  Receipt Date: 20040604
  Transmission Date: 20050107
  Serious: Yes (Hospitalization)
  Sender: FDA-Public Use
  Company Number: F01200401325

PATIENT
  Age: 65 Year
  Sex: Female

DRUGS (24)
  1. OXALIPLATIN - SOLUTION - 130 MG/M2 [Suspect]
     Indication: COLORECTAL CANCER
     Dosage: 130 MG/M2 Q3W INTRAVENOUS NOS
     Route: 042
     Dates: start: 20040415, end: 20040415
  2. CAPECITABINE - TABLET - 850 MG/M2 [Suspect]
     Dosage: 850 MG/M2 TWICE DAILY FROM D1 TO D15, Q3W ORAL
     Route: 048
     Dates: start: 20040415, end: 20040415
  3. AVASTIN [Suspect]
     Dosage: 7.5 MG/KG OVER 30-90 MINUTES IV INFUSION ON DAY 1, Q3W INTRAVENOUS NOS
     Route: 042
     Dates: start: 20040415, end: 20040415
  4. COZAAR [Concomitant]
  5. LEVOTHYROXINE SODIUM [Concomitant]
  6. GLYBURIDE [Concomitant]
  7. VIOXX [Concomitant]
  8. DEXAMETHASONE [Concomitant]
  9. BENADRYL [Concomitant]
  10. DOLASETRON [Concomitant]
  11. ATIVAN [Concomitant]
  12. HUMULIN INSULIN (INSULIN HUMAN) [Concomitant]
  13. LOVASTATIN [Concomitant]
  14. HYDROCHLOROTHIAZIDE [Concomitant]
  15. NEXIUM [Concomitant]
  16. DILAUDID [Concomitant]
  17. VICODIN (HYDROCODONE TARTRATE+PARACETAMOL) [Concomitant]
  18. MS CONTIN [Concomitant]
  19. COMPAZINE [Concomitant]
  20. LOMOTIL [Concomitant]
  21. VISION VITAMINS (VITAMINS (NOS)) [Concomitant]
  22. CALCIUM PLUS VITAMIN D (CALCIUM) [Concomitant]
  23. CALCIUM PLUS VITAMIN D (VITAMIN D) [Concomitant]
  24. ASPIRIN [Concomitant]

REACTIONS (18)
  - ACTIVATED PARTIAL THROMBOPLASTIN TIME PROLONGED [None]
  - BLOOD GLUCOSE INCREASED [None]
  - BLOOD MAGNESIUM DECREASED [None]
  - BLOOD POTASSIUM DECREASED [None]
  - DEHYDRATION [None]
  - DIARRHOEA [None]
  - ENTEROCUTANEOUS FISTULA [None]
  - FALL [None]
  - HAEMATOCRIT DECREASED [None]
  - HAEMOGLOBIN DECREASED [None]
  - HYPOTENSION [None]
  - INTERNATIONAL NORMALISED RATIO INCREASED [None]
  - NAUSEA [None]
  - RENAL FAILURE ACUTE [None]
  - STAPHYLOCOCCAL INFECTION [None]
  - TACHYCARDIA [None]
  - URINE LEUKOCYTE ESTERASE POSITIVE [None]
  - VOMITING [None]
